FAERS Safety Report 24675075 (Version 1)
Quarter: 2024Q4

REPORT INFORMATION
  Report Type: Spontaneous
  Country: CA (occurrence: CA)
  Receive Date: 20241128
  Receipt Date: 20241128
  Transmission Date: 20250114
  Serious: Yes (Life-Threatening, Hospitalization, Other)
  Sender: ACCORD
  Company Number: None

PATIENT
  Age: 76 Year
  Sex: Male
  Weight: 88 kg

DRUGS (19)
  1. DOCETAXEL [Suspect]
     Active Substance: DOCETAXEL
     Indication: Neoplasm prostate
     Dosage: STRENGTH: 20MG/2ML; 80MG/8ML; 160MG/16ML VIALS, SOLUTION INTRAVENOUS, 1 EVERY 21 DAYS
     Route: 042
  2. EDOXABAN [Suspect]
     Active Substance: EDOXABAN
     Indication: Atrial fibrillation
     Dosage: 1 EVERY 1 DAYS
     Route: 048
  3. BISOPROLOL [Concomitant]
     Active Substance: BISOPROLOL
     Route: 065
  4. CALCIUM [Concomitant]
     Active Substance: CALCIUM
  5. CHOLECALCIFEROL [Concomitant]
     Active Substance: CHOLECALCIFEROL
  6. DEXAMETHASONE [Concomitant]
     Active Substance: DEXAMETHASONE
     Route: 065
  7. DUTASTERIDE [Concomitant]
     Active Substance: DUTASTERIDE
  8. ELIGARD [Concomitant]
     Active Substance: LEUPROLIDE ACETATE
     Dosage: POWDER FOR SUSPENSION, SUSTAINED RELEASE
  9. ESOMEPRAZOLE [Concomitant]
     Active Substance: ESOMEPRAZOLE
     Route: 065
  10. FILGRASTIM [Concomitant]
     Active Substance: FILGRASTIM
  11. LOPERAMIDE [Concomitant]
     Active Substance: LOPERAMIDE
  12. METFORMIN\SITAGLIPTIN [Concomitant]
     Active Substance: METFORMIN\SITAGLIPTIN
  13. NITROGLYCERIN [Concomitant]
     Active Substance: NITROGLYCERIN
  14. PREGABALIN [Concomitant]
     Active Substance: PREGABALIN
  15. PROCHLORPERAZINE [Concomitant]
     Active Substance: PROCHLORPERAZINE
  16. RAPAFLO [Concomitant]
     Active Substance: SILODOSIN
  17. ROSUVASTATIN [Concomitant]
     Active Substance: ROSUVASTATIN
     Route: 065
  18. TYLENOL ARTHRITIS PAIN [Concomitant]
     Active Substance: ACETAMINOPHEN
     Dosage: TABLET (EXTENDED- RELEASE)
  19. XGEVA [Concomitant]
     Active Substance: DENOSUMAB
     Dosage: SOLUTION SUBCUTANEOUS

REACTIONS (2)
  - Haemorrhage [Not Recovered/Not Resolved]
  - Anaemia [Not Recovered/Not Resolved]
